FAERS Safety Report 5601344-8 (Version None)
Quarter: 2008Q1

REPORT INFORMATION
  Report Type: 
  Country: None (occurrence: None)
  Receive Date: 20080118
  Receipt Date: 20080108
  Transmission Date: 20080703
  Serious: Yes (Hospitalization, Other)
  Sender: FDA-Public Use
  Company Number: 2008US000143

PATIENT
  Age: 13 Year
  Sex: Male

DRUGS (7)
  1. PROGRAF [Suspect]
     Indication: RENAL TRANSPLANT
     Dates: start: 20060801, end: 20080107
  2. EVEROLIMUS (EVEROLIMUS) [Concomitant]
  3. VALGANCICLOVIR HCL [Concomitant]
  4. ALLOPURINOL [Concomitant]
  5. TRIMETOPRIM + SULFAMETOXAZOL (SULFAMETHOXAZOLE, TRIMETHOPRIM) [Concomitant]
  6. SODIUM BICARBONATE IN PLASTIC CONTAINER [Concomitant]
  7. FOLIC ACID [Concomitant]

REACTIONS (2)
  - DIABETIC KETOACIDOSIS [None]
  - UROSEPSIS [None]
